FAERS Safety Report 15812575 (Version 1)
Quarter: 2019Q1

REPORT INFORMATION
  Report Type: Spontaneous
  Country: US (occurrence: US)
  Receive Date: 20190111
  Receipt Date: 20190111
  Transmission Date: 20190417
  Serious: No
  Sender: FDA-Public Use
  Company Number: US-PFIZER INC-2018470661

PATIENT
  Age: 42 Year
  Sex: Female

DRUGS (8)
  1. DOCETAXEL. [Suspect]
     Active Substance: DOCETAXEL
     Indication: BREAST CANCER FEMALE
     Dosage: 141 MG, CYCLIC (EVERY THREE WEEKS, 06 CYCLES)
     Dates: start: 20130121, end: 20130607
  2. DOCEFREZ [Suspect]
     Active Substance: DOCETAXEL ANHYDROUS
     Indication: BREAST CANCER FEMALE
     Dosage: 141 MG, CYCLIC (EVERY THREE WEEKS, 06 CYCLES)
     Dates: start: 20130121, end: 20130607
  3. TAXOTERE [Suspect]
     Active Substance: DOCETAXEL
     Indication: BREAST CANCER FEMALE
     Dosage: 141 MG, CYCLIC (EVERY THREE WEEKS, 06 CYCLES)
     Dates: start: 20130121, end: 20130607
  4. DOCETAXEL ACTAVIS [Suspect]
     Active Substance: DOCETAXEL
     Indication: BREAST CANCER FEMALE
     Dosage: 141 MG, CYCLIC (EVERY THREE WEEKS, 06 CYCLES)
     Dates: start: 20130121, end: 20130607
  5. DOCETAXEL SANDOZ [Suspect]
     Active Substance: DOCETAXEL
     Indication: BREAST CANCER FEMALE
     Dosage: 141 MG, CYCLIC (EVERY THREE WEEKS, 06 CYCLES)
     Dates: start: 20130121, end: 20130607
  6. NEOSAR [Concomitant]
     Active Substance: CYCLOPHOSPHAMIDE
     Indication: CHEMOTHERAPY
     Dosage: UNK
  7. DOCETAXEL ACCORD [Suspect]
     Active Substance: DOCETAXEL
     Indication: BREAST CANCER FEMALE
     Dosage: 141 MG, CYCLIC (EVERY THREE WEEKS, 06 CYCLES)
     Dates: start: 20130121, end: 20130607
  8. DOCETAXEL SANOFI [Suspect]
     Active Substance: DOCETAXEL
     Indication: BREAST CANCER FEMALE
     Dosage: 141 MG, CYCLIC (EVERY THREE WEEKS, 06 CYCLES)
     Dates: start: 20130121, end: 20130607

REACTIONS (2)
  - Alopecia [Not Recovered/Not Resolved]
  - Madarosis [Not Recovered/Not Resolved]

NARRATIVE: CASE EVENT DATE: 201311
